FAERS Safety Report 23359977 (Version 2)
Quarter: 2024Q1

REPORT INFORMATION
  Report Type: Report from Study
  Country: CA (occurrence: CA)
  Receive Date: 20240103
  Receipt Date: 20240215
  Transmission Date: 20240409
  Serious: Yes (Other)
  Sender: FDA-Public Use
  Company Number: CA-ABBVIE-5568613

PATIENT
  Sex: Female
  Weight: 54.431 kg

DRUGS (4)
  1. GLECAPREVIR\PIBRENTASVIR [Suspect]
     Active Substance: GLECAPREVIR\PIBRENTASVIR
     Indication: Chronic hepatitis C
     Dosage: TIME INTERVAL: 0.33333333 DAYS: 100/40 MILLIGRAM
     Route: 048
     Dates: start: 20230607, end: 20230802
  2. PERINDOPRIL [Concomitant]
     Active Substance: PERINDOPRIL
     Indication: Product used for unknown indication
  3. SYNTHROID [Concomitant]
     Active Substance: LEVOTHYROXINE SODIUM
     Indication: Product used for unknown indication
     Route: 048
  4. METHADONE [Concomitant]
     Active Substance: METHADONE HYDROCHLORIDE
     Indication: Product used for unknown indication
     Route: 048

REACTIONS (12)
  - Neoplasm malignant [Unknown]
  - Renal cyst [Unknown]
  - Pneumobilia [Unknown]
  - Cholangiocarcinoma [Unknown]
  - Scoliosis [Unknown]
  - Cholelithiasis [Unknown]
  - Gallbladder rupture [Unknown]
  - Intra-abdominal fluid collection [Unknown]
  - Complication associated with device [Unknown]
  - Atelectasis [Unknown]
  - Spondylolisthesis [Unknown]
  - Cholecystitis [Unknown]

NARRATIVE: CASE EVENT DATE: 20230101
